FAERS Safety Report 4900377-4 (Version None)
Quarter: 2006Q1

REPORT INFORMATION
  Report Type: 
  Country: None (occurrence: None)
  Receive Date: 20060201
  Receipt Date: 20060116
  Transmission Date: 20060701
  Serious: Yes (Hospitalization, Other)
  Sender: FDA-Public Use
  Company Number: US200601002579

PATIENT
  Sex: Female

DRUGS (1)
  1. GEMZAR [Suspect]
     Indication: BREAST CANCER METASTATIC
     Dosage: 1000 MG/M2, INTRAVENOUS
     Route: 042
     Dates: start: 20060111

REACTIONS (9)
  - CONDITION AGGRAVATED [None]
  - DYSPNOEA [None]
  - HYPOXIA [None]
  - NEUTROPHIL COUNT DECREASED [None]
  - PULMONARY TOXICITY [None]
  - PYREXIA [None]
  - RALES [None]
  - RESPIRATORY SYNCYTIAL VIRUS INFECTION [None]
  - WHITE BLOOD CELL COUNT DECREASED [None]
